FAERS Safety Report 8737830 (Version 2)
Quarter: 2013Q4

REPORT INFORMATION
  Report Type: Report from Study
  Country: US (occurrence: US)
  Receive Date: 20120822
  Receipt Date: 20131108
  Transmission Date: 20140711
  Serious: Yes (Other)
  Sender: FDA-Public Use
  Company Number: US-009507513-1208USA007754

PATIENT
  Sex: Male

DRUGS (6)
  1. REBETOL [Suspect]
     Indication: CHRONIC HEPATITIS C
     Dosage: 1200, MG, QD
     Route: 048
     Dates: start: 20110711
  2. REBETOL [Suspect]
     Dosage: 800 MG, QD
     Dates: start: 20111101, end: 20111224
  3. REBETOL [Suspect]
     Dosage: 600 MG, UNK
     Dates: start: 20111101, end: 20111224
  4. VICTRELIS [Suspect]
     Indication: CHRONIC HEPATITIS C
     Dosage: 800 MG, TID
     Dates: start: 20110808
  5. PEGASYS [Suspect]
     Indication: CHRONIC HEPATITIS C
     Dosage: 180 MICROGRAM, QW
     Dates: start: 20110711
  6. PEGASYS [Suspect]
     Dosage: 135 MICROGRAM, QW
     Dates: start: 20111101, end: 20111224

REACTIONS (17)
  - Blood count [Unknown]
  - Anaemia [Unknown]
  - Fatigue [Unknown]
  - Dyspnoea [Unknown]
  - Weight increased [Unknown]
  - Weight decreased [Unknown]
  - Asthenia [Unknown]
  - Nausea [Unknown]
  - Dry skin [Unknown]
  - Rash [Unknown]
  - Pollakiuria [Unknown]
  - Paraesthesia [Unknown]
  - Malaise [Unknown]
  - Blood calcium decreased [Unknown]
  - Back pain [Unknown]
  - Skin ulcer [Unknown]
  - Visual acuity reduced [Unknown]
